FAERS Safety Report 7608748-2 (Version None)
Quarter: 2011Q3

REPORT INFORMATION
  Report Type: 
  Country: None (occurrence: None)
  Receive Date: 20110714
  Receipt Date: 20110714
  Transmission Date: 20111222
  Serious: Yes (Other)
  Sender: FDA-Public Use
  Company Number: None

PATIENT
  Sex: Male
  Weight: 90.718 kg

DRUGS (1)
  1. CRESTOR [Suspect]
     Indication: LOW DENSITY LIPOPROTEIN INCREASED
     Dosage: 10 MG
     Route: 048
     Dates: start: 20110712, end: 20110712

REACTIONS (5)
  - THIRST [None]
  - BODY TEMPERATURE INCREASED [None]
  - TONGUE DISORDER [None]
  - NIGHTMARE [None]
  - TONGUE COATED [None]
